FAERS Safety Report 10526069 (Version 3)
Quarter: 2014Q4

REPORT INFORMATION
  Report Type: Spontaneous
  Country: US (occurrence: US)
  Receive Date: 20141017
  Receipt Date: 20141205
  Transmission Date: 20150528
  Serious: Yes (Other)
  Sender: FDA-Public Use
  Company Number: US-PFIZER INC-2014281479

PATIENT
  Age: 74 Year
  Sex: Female
  Weight: 78 kg

DRUGS (14)
  1. XELJANZ [Suspect]
     Active Substance: TOFACITINIB CITRATE
     Dosage: 5 MG, 2X/DAY
     Route: 048
  2. METHOTREXATE [Suspect]
     Active Substance: METHOTREXATE
     Indication: RHEUMATIC DISORDER
     Dosage: 2.5MG TABLETS IN A DOSE PACK AT 8 TABLET (20MG) ONCE A WEEK
  3. PREDNISONE. [Concomitant]
     Active Substance: PREDNISONE
     Dosage: 3.5 MG, 1X/DAY (1 MG TABLET 3.5 TABLET ONCE A DAY)
  4. PREDNISONE. [Concomitant]
     Active Substance: PREDNISONE
     Dosage: TAPERING DOSE
  5. CALCIUM [Concomitant]
     Active Substance: CALCIUM
     Dosage: 500 (UNSPECIFIED UNIT)
  6. PRAMIPEXOLE [Concomitant]
     Active Substance: PRAMIPEXOLE
     Dosage: 0.125 MG
  7. FOLIC ACID. [Concomitant]
     Active Substance: FOLIC ACID
     Dosage: 1 MG, 1X/DAY
  8. MELOXICAM. [Concomitant]
     Active Substance: MELOXICAM
     Dosage: 7.5 MG, 2X/DAY (15 MG TABLET 0.5 TABLET TWICE A DAY )
  9. COENZYME Q10 [Concomitant]
     Active Substance: UBIDECARENONE
     Dosage: 300 MG, 1X/DAY
  10. VITAMIN C [Concomitant]
     Active Substance: ASCORBIC ACID
     Dosage: 500 MG
  11. VITAMIN D3 [Concomitant]
     Active Substance: CHOLECALCIFEROL
     Dosage: 400 IU, 1X/DAY
  12. NEXIUM [Concomitant]
     Active Substance: ESOMEPRAZOLE MAGNESIUM
     Dosage: UNK
  13. XELJANZ [Suspect]
     Active Substance: TOFACITINIB CITRATE
     Indication: RHEUMATOID ARTHRITIS
     Dosage: 5 MG, 2X/DAY
     Route: 048
     Dates: start: 20140707
  14. MIRAPEX [Concomitant]
     Active Substance: PRAMIPEXOLE DIHYDROCHLORIDE
     Dosage: 0.125 MG, 3X/DAY

REACTIONS (5)
  - Fall [Unknown]
  - Foot fracture [Recovered/Resolved]
  - Hepatic enzyme increased [Unknown]
  - Foot deformity [Recovered/Resolved]
  - Fatigue [Unknown]

NARRATIVE: CASE EVENT DATE: 201407
